FAERS Safety Report 11789204 (Version 1)
Quarter: 2015Q4

REPORT INFORMATION
  Report Type: Report from Study
  Country: FR (occurrence: FR)
  Receive Date: 20151201
  Receipt Date: 20151201
  Transmission Date: 20160305
  Serious: Yes (Hospitalization)
  Sender: FDA-Public Use
  Company Number: FR-ROCHE-1670090

PATIENT
  Age: 59 Year
  Sex: Male
  Weight: 81 kg

DRUGS (3)
  1. RITUXIMAB [Suspect]
     Active Substance: RITUXIMAB
     Indication: ANTI-NEUTROPHIL CYTOPLASMIC ANTIBODY POSITIVE VASCULITIS
     Dosage: DAY 1
     Route: 041
     Dates: start: 20130911, end: 20130911
  2. RITUXIMAB [Suspect]
     Active Substance: RITUXIMAB
     Dosage: AT 6 MONTH AS SCHEDULED IN PROTOCOL
     Route: 042
     Dates: start: 20140311
  3. RITUXIMAB [Suspect]
     Active Substance: RITUXIMAB
     Dosage: DAY 15
     Route: 041
     Dates: start: 20130925, end: 20130925

REACTIONS (3)
  - Renal impairment [Recovered/Resolved]
  - Pyrexia [Recovered/Resolved]
  - Lung disorder [Recovered/Resolved]

NARRATIVE: CASE EVENT DATE: 20140220
